FAERS Safety Report 10606497 (Version 1)
Quarter: 2014Q4

REPORT INFORMATION
  Report Type: Spontaneous
  Country: IT (occurrence: IT)
  Receive Date: 20141125
  Receipt Date: 20141125
  Transmission Date: 20150529
  Serious: Yes (Other)
  Sender: FDA-Public Use
  Company Number: IT-BAYER-2014-169932

PATIENT
  Age: 79 Year
  Sex: Female

DRUGS (11)
  1. GLUCOBAY [Suspect]
     Active Substance: ACARBOSE
     Indication: DIABETES MELLITUS
     Dosage: DAILY DOSE 100 MG
     Route: 048
     Dates: start: 20140101, end: 20141014
  2. TRUSOPT [Concomitant]
     Active Substance: DORZOLAMIDE HYDROCHLORIDE
     Dosage: UNK
     Route: 047
  3. LEXOTAN [Concomitant]
     Active Substance: BROMAZEPAM
     Dosage: UNK
     Route: 048
  4. LANOXIN [Concomitant]
     Active Substance: DIGOXIN
     Dosage: UNK
     Route: 048
  5. ZYLORIC [Concomitant]
     Active Substance: ALLOPURINOL
     Dosage: UNK
     Route: 048
  6. GLICOREST [Suspect]
     Active Substance: GLYBURIDE\METFORMIN HYDROCHLORIDE
     Indication: DIABETES MELLITUS
     Dosage: DAILY DOSE 3 DF
     Route: 048
     Dates: start: 20140101, end: 20141014
  7. COUMADIN [Concomitant]
     Active Substance: WARFARIN SODIUM
     Dosage: UNK
     Route: 048
  8. LASIX [Concomitant]
     Active Substance: FUROSEMIDE
     Dosage: UNK
     Route: 048
  9. KANRENOL [Concomitant]
     Active Substance: CANRENOATE POTASSIUM
     Dosage: UNK
     Route: 048
  10. METFORAL [Suspect]
     Active Substance: METFORMIN HYDROCHLORIDE
     Indication: DIABETES MELLITUS
     Dosage: DAILY DOSE 250 MG
     Route: 048
     Dates: start: 20140101, end: 20141014
  11. SUMMAVIT [Concomitant]
     Dosage: UNK
     Route: 048

REACTIONS (1)
  - Hypoglycaemia [Recovering/Resolving]

NARRATIVE: CASE EVENT DATE: 20141014
